FAERS Safety Report 12356942 (Version 1)
Quarter: 2016Q2

REPORT INFORMATION
  Report Type: Spontaneous
  Country: US (occurrence: US)
  Receive Date: 20160511
  Receipt Date: 20160511
  Transmission Date: 20160815
  Serious: No
  Sender: FDA-Public Use
  Company Number: US-PFIZER INC-2016246033

PATIENT
  Sex: Female

DRUGS (2)
  1. NORCO [Concomitant]
     Active Substance: ACETAMINOPHEN\HYDROCODONE BITARTRATE
  2. ADVIL [Suspect]
     Active Substance: IBUPROFEN

REACTIONS (4)
  - Expired product administered [Unknown]
  - Inappropriate schedule of drug administration [Unknown]
  - Feeling abnormal [Unknown]
  - Extra dose administered [Unknown]
